FAERS Safety Report 4328070-X (Version None)
Quarter: 2004Q1

REPORT INFORMATION
  Report Type: 
  Country: None (occurrence: None)
  Receive Date: 20040331
  Receipt Date: 20030624
  Transmission Date: 20041129
  Serious: Yes (Disabling)
  Sender: FDA-Public Use
  Company Number: JP-MERCK-0306USA03238

PATIENT
  Age: 17 Year
  Sex: Female
  Weight: 44 kg

DRUGS (10)
  1. COSMEGEN [Suspect]
     Indication: CHORIOCARCINOMA
     Route: 042
     Dates: start: 20020730, end: 20020802
  2. COSMEGEN [Suspect]
     Route: 042
     Dates: start: 20020813, end: 20020816
  3. COSMEGEN [Suspect]
     Route: 042
     Dates: start: 20020827, end: 20020830
  4. COSMEGEN [Suspect]
     Route: 042
     Dates: start: 20020924, end: 20020927
  5. COSMEGEN [Suspect]
     Route: 042
     Dates: start: 20021008, end: 20021011
  6. COSMEGEN [Suspect]
     Route: 042
     Dates: start: 20021022, end: 20021024
  7. COSMEGEN [Suspect]
     Route: 042
     Dates: start: 20020909, end: 20020912
  8. METHOTREXATE [Concomitant]
     Indication: CHORIOCARCINOMA
     Route: 030
     Dates: start: 20020619, end: 20020622
  9. METHOTREXATE [Concomitant]
     Route: 030
     Dates: start: 20020630, end: 20020704
  10. METHOTREXATE [Concomitant]
     Route: 030
     Dates: start: 20020715, end: 20020719

REACTIONS (5)
  - HEPATIC ENZYME INCREASED [None]
  - MALAISE [None]
  - OPTIC NERVE DISORDER [None]
  - PYREXIA [None]
  - VISUAL ACUITY REDUCED [None]
